FAERS Safety Report 5222896-6 (Version None)
Quarter: 2007Q1

REPORT INFORMATION
  Report Type: 
  Country: None (occurrence: None)
  Receive Date: 20061208
  Receipt Date: 20060301
  Transmission Date: 20070707
  Serious: Yes (Other)
  Sender: FDA-Public Use
  Company Number: 2006033124

PATIENT
  Age: 26 Year
  Sex: Male
  Weight: 127.0072 kg

DRUGS (5)
  1. VIAGRA [Suspect]
     Indication: ILL-DEFINED DISORDER
     Dates: start: 20060201
  2. MINOCYCLINE HCL [Concomitant]
  3. BENZACLIN (BENZOYL PEROXIDE, CLINDAMYCIN) [Concomitant]
  4. ALL OTHER NON-THERAPEUTIC PRODUCTS (ALL OTHER NON-THERAPEUTIC PRODUCTS [Concomitant]
  5. NYQUIL (DEXTROMETHORPHAN HYDROBROMIDE, DOXYLAMINE SUCCINATE, EPHEDRINE [Concomitant]

REACTIONS (4)
  - ERECTION INCREASED [None]
  - INTENTIONAL DRUG MISUSE [None]
  - NERVOUSNESS [None]
  - SKIN DISCOLOURATION [None]
